FAERS Safety Report 7308560-8 (Version None)
Quarter: 2011Q1

REPORT INFORMATION
  Report Type: 
  Country: None (occurrence: None)
  Receive Date: 20110223
  Receipt Date: 20110215
  Transmission Date: 20110831
  Serious: Yes (Hospitalization)
  Sender: FDA-Public Use
  Company Number: GB-JNJFOC-20110204681

PATIENT
  Sex: Female

DRUGS (5)
  1. REMICADE [Suspect]
     Route: 042
  2. REMICADE [Suspect]
     Route: 042
  3. REMICADE [Suspect]
     Indication: CROHN'S DISEASE
     Route: 042
  4. ASACOL [Concomitant]
     Route: 065
  5. REMICADE [Suspect]
     Route: 042

REACTIONS (4)
  - MALAISE [None]
  - ASTHENIA [None]
  - PAIN [None]
  - PYREXIA [None]
